FAERS Safety Report 13619744 (Version 1)
Quarter: 2017Q2

REPORT INFORMATION
  Report Type: Spontaneous
  Country: CN (occurrence: CN)
  Receive Date: 20170606
  Receipt Date: 20170606
  Transmission Date: 20170830
  Serious: Yes (Hospitalization)
  Sender: FDA-Public Use
  Company Number: CN-ELI_LILLY_AND_COMPANY-CN201706000922

PATIENT
  Sex: Female

DRUGS (5)
  1. HUMALOG [Suspect]
     Active Substance: INSULIN LISPRO
     Indication: DIABETES MELLITUS
     Dosage: 16 U, EACH MORNING
     Route: 058
     Dates: start: 2005
  2. HUMALOG [Suspect]
     Active Substance: INSULIN LISPRO
     Dosage: 10 U, EACH EVENING
     Route: 058
     Dates: start: 2005
  3. ACARBOSE. [Concomitant]
     Active Substance: ACARBOSE
     Dosage: 2 DF, AT NOON
     Route: 065
  4. ACARBOSE. [Concomitant]
     Active Substance: ACARBOSE
     Dosage: 1.5 DF, EACH EVENING
     Route: 065
  5. ACARBOSE. [Concomitant]
     Active Substance: ACARBOSE
     Indication: PRODUCT USED FOR UNKNOWN INDICATION
     Dosage: 1 DF, EACH MORNING
     Route: 065

REACTIONS (4)
  - Hypoglycaemia [Unknown]
  - Blood glucose increased [Unknown]
  - Hypoglycaemia [Unknown]
  - Blood glucose increased [Unknown]

NARRATIVE: CASE EVENT DATE: 2016
